FAERS Safety Report 18228518 (Version 2)
Quarter: 2020Q3

REPORT INFORMATION
  Report Type: Spontaneous
  Country: US (occurrence: US)
  Receive Date: 20200903
  Receipt Date: 20200907
  Transmission Date: 20201103
  Serious: Yes (Other)
  Sender: FDA-Public Use
  Company Number: US-SHIRE-US202028177

PATIENT
  Age: 70 Year

DRUGS (2)
  1. TAKHZYRO [Suspect]
     Active Substance: LANADELUMAB-FLYO
     Indication: PRODUCT USED FOR UNKNOWN INDICATION
     Dosage: UNK
     Route: 065
  2. 623 (RECOMBINANT HUMAN C1 ESTERASE INHIBITOR) [Concomitant]
     Indication: HEREDITARY ANGIOEDEMA

REACTIONS (2)
  - Transient ischaemic attack [Unknown]
  - Lymphomatoid papulosis [Unknown]
